FAERS Safety Report 14854048 (Version 1)
Quarter: 2018Q2

REPORT INFORMATION
  Report Type: Spontaneous
  Country: IT (occurrence: IT)
  Receive Date: 20180507
  Receipt Date: 20180507
  Transmission Date: 20180711
  Serious: Yes (Other)
  Sender: FDA-Public Use
  Company Number: IT-PFIZER INC-2018181611

PATIENT
  Age: 73 Year
  Sex: Female
  Weight: 58 kg

DRUGS (6)
  1. CONTRAMAL [Concomitant]
     Active Substance: TRAMADOL HYDROCHLORIDE
     Dosage: UNK
     Route: 048
  2. DELTACORTENE [Concomitant]
     Active Substance: PREDNISONE
     Dosage: 25 MG, UNK
     Route: 048
  3. BLOPRESS [Concomitant]
     Active Substance: CANDESARTAN CILEXETIL
     Dosage: 8 MG, UNK
     Route: 048
  4. DILATREND [Concomitant]
     Active Substance: CARVEDILOL
     Dosage: 25 MG, UNK
     Route: 048
  5. CARBOPLATIN. [Suspect]
     Active Substance: CARBOPLATIN
     Indication: OVARIAN CANCER
     Dosage: 300 MG, CYCLIC
     Route: 042
     Dates: start: 20160128
  6. VERSATIS [Concomitant]
     Active Substance: LIDOCAINE
     Dosage: UNK
     Route: 062

REACTIONS (6)
  - Cough [Recovered/Resolved]
  - Chest discomfort [Recovered/Resolved]
  - Nasal congestion [Recovered/Resolved]
  - Hypoxia [Recovered/Resolved]
  - Malaise [Recovered/Resolved]
  - Erythema [Recovered/Resolved]

NARRATIVE: CASE EVENT DATE: 20180307
